FAERS Safety Report 6543814-4 (Version None)
Quarter: 2010Q1

REPORT INFORMATION
  Report Type: 
  Country: None (occurrence: None)
  Receive Date: 20100120
  Receipt Date: 20100108
  Transmission Date: 20100710
  Serious: Yes (Death, Hospitalization)
  Sender: FDA-Public Use
  Company Number: US-PFIZER INC-2009305186

PATIENT
  Age: 53 Year
  Sex: Female
  Weight: 46 kg

DRUGS (8)
  1. SUTENT [Suspect]
     Indication: THYROID CANCER
     Dosage: 25 MG, UNK
     Dates: start: 20090323, end: 20091030
  2. TRAMADOL [Concomitant]
     Dosage: UNK
     Route: 048
  3. COMPAZINE [Concomitant]
     Dosage: UNK
     Route: 048
  4. FENTANYL [Concomitant]
     Dosage: 100 MCG, EVERY OTHER DAY
     Route: 062
  5. FLUTICASONE [Concomitant]
     Dosage: 50 MCG, DAILY
  6. HYDROMET SYRUP [Concomitant]
     Dosage: 5-1.5 MG/5 ML
     Route: 048
  7. LEVOXYL [Concomitant]
     Dosage: 112 MCG, DAILY
     Route: 048
  8. IMODIUM A-D [Concomitant]
     Dosage: 2 TABLETS DAILY
     Route: 048

REACTIONS (3)
  - DECREASED APPETITE [None]
  - DYSPHAGIA [None]
  - PNEUMONITIS [None]
